FAERS Safety Report 15207851 (Version 1)
Quarter: 2018Q3

REPORT INFORMATION
  Report Type: Spontaneous
  Country: GB (occurrence: GB)
  Receive Date: 20180727
  Receipt Date: 20180727
  Transmission Date: 20181010
  Serious: Yes (Hospitalization)
  Sender: FDA-Public Use
  Company Number: GB-TORRENT-00016926

PATIENT
  Age: 16 Year
  Sex: Male
  Weight: 65 kg

DRUGS (1)
  1. LAMOTRIGINE. [Suspect]
     Active Substance: LAMOTRIGINE
     Indication: EPILEPSY
     Dosage: NIGHT
     Route: 048
     Dates: start: 20180508, end: 20180603

REACTIONS (6)
  - Lip swelling [Unknown]
  - Mucosal inflammation [Unknown]
  - Rash pruritic [Unknown]
  - Hypophagia [Unknown]
  - Chapped lips [Unknown]
  - Stevens-Johnson syndrome [Recovering/Resolving]

NARRATIVE: CASE EVENT DATE: 20180604
